FAERS Safety Report 25428903 (Version 1)
Quarter: 2025Q2

REPORT INFORMATION
  Report Type: Report from Study
  Country: US (occurrence: US)
  Receive Date: 20250612
  Receipt Date: 20250612
  Transmission Date: 20250717
  Serious: No
  Sender: Day One Biopharmaceuticals
  Company Number: US-Day One Biopharmaceuticals Inc.-2025US000890

PATIENT

DRUGS (3)
  1. OJEMDA [Suspect]
     Active Substance: TOVORAFENIB
     Indication: Brain neoplasm malignant
     Route: 065
     Dates: start: 202505, end: 202505
  2. OJEMDA [Suspect]
     Active Substance: TOVORAFENIB
     Route: 065
     Dates: start: 2025
  3. OJEMDA [Suspect]
     Active Substance: TOVORAFENIB
     Route: 065
     Dates: start: 20250225, end: 2025

REACTIONS (2)
  - Accidental underdose [Recovered/Resolved]
  - Product packaging quantity issue [Unknown]

NARRATIVE: CASE EVENT DATE: 20250501
